FAERS Safety Report 10530411 (Version 1)
Quarter: 2014Q4

REPORT INFORMATION
  Report Type: Spontaneous
  Country: US (occurrence: None)
  Receive Date: 20141020
  Receipt Date: 20141020
  Transmission Date: 20150528
  Serious: Yes (Disabling)
  Sender: FDA-Public Use
  Company Number: None

PATIENT
  Age: 35 Year
  Sex: Female
  Weight: 58.97 kg

DRUGS (1)
  1. BUPROPION SR [Suspect]
     Active Substance: BUPROPION
     Indication: ANXIETY
     Dosage: 2 PILL ONCE DAILY TAKEN BY MOUTH
     Route: 048
     Dates: start: 20140814, end: 20140831

REACTIONS (1)
  - Ageusia [None]

NARRATIVE: CASE EVENT DATE: 20140831
